FAERS Safety Report 22267713 (Version 1)
Quarter: 2023Q2

REPORT INFORMATION
  Report Type: Spontaneous
  Country: HU (occurrence: HU)
  Receive Date: 20230430
  Receipt Date: 20230430
  Transmission Date: 20230722
  Serious: Yes (Death, Hospitalization, Other)
  Sender: FDA-Public Use
  Company Number: HU-BoehringerIngelheim-2023-BI-234423

PATIENT
  Age: 60 Year
  Sex: Female

DRUGS (2)
  1. JARDIANCE [Suspect]
     Active Substance: EMPAGLIFLOZIN
     Indication: Cardiac failure
  2. FUROSEMIDE [Concomitant]
     Active Substance: FUROSEMIDE
     Route: 042

REACTIONS (3)
  - Sepsis [Fatal]
  - Ketoacidosis [Fatal]
  - Off label use [Unknown]
